FAERS Safety Report 19956394 (Version 1)
Quarter: 2021Q4

REPORT INFORMATION
  Report Type: Spontaneous
  Country: US (occurrence: US)
  Receive Date: 20211014
  Receipt Date: 20211014
  Transmission Date: 20220303
  Serious: No
  Sender: FDA-Public Use
  Company Number: US-MILLICENT HOLDINGS LTD.-MILL20210905

PATIENT
  Age: 59 Year
  Sex: Female

DRUGS (5)
  1. INTRAROSA [Suspect]
     Active Substance: PRASTERONE
     Indication: Atrophic vulvovaginitis
     Dosage: UNKNOWN
     Route: 067
  2. INTRAROSA [Suspect]
     Active Substance: PRASTERONE
     Indication: Vulvitis
  3. INTRAROSA [Suspect]
     Active Substance: PRASTERONE
     Indication: Vulvovaginal dryness
  4. INTRAROSA [Suspect]
     Active Substance: PRASTERONE
     Indication: Dyspareunia
  5. INTRAROSA [Suspect]
     Active Substance: PRASTERONE
     Indication: Bladder disorder

REACTIONS (2)
  - Off label use [Unknown]
  - Product dose omission issue [Unknown]
